FAERS Safety Report 9610612 (Version 3)
Quarter: 2013Q4

REPORT INFORMATION
  Report Type: Spontaneous
  Country: US (occurrence: US)
  Receive Date: 20131009
  Receipt Date: 20131115
  Transmission Date: 20140711
  Serious: Yes (Hospitalization, Other)
  Sender: FDA-Public Use
  Company Number: US-GILEAD-2013-0085032

PATIENT
  Sex: Female

DRUGS (2)
  1. LETAIRIS [Suspect]
     Indication: PULMONARY HYPERTENSION
     Dosage: 5 MG, QD
     Route: 048
     Dates: start: 20130618
  2. LETAIRIS [Suspect]
     Indication: PULMONARY EMBOLISM

REACTIONS (3)
  - Sickle cell anaemia [Unknown]
  - Unevaluable event [Unknown]
  - Pulmonary oedema [Unknown]
